FAERS Safety Report 7553104-9 (Version None)
Quarter: 2011Q2

REPORT INFORMATION
  Report Type: 
  Country: None (occurrence: None)
  Receive Date: 20110616
  Receipt Date: 20090716
  Transmission Date: 20111010
  Serious: Yes (Death, Hospitalization, Other)
  Sender: FDA-Public Use
  Company Number: US-BAYER-200926381NA

PATIENT
  Age: 69 Year
  Sex: Male
  Weight: 126 kg

DRUGS (29)
  1. AMOXICILLIN [Concomitant]
     Dosage: 250 MG
  2. LIDOCAINE [Concomitant]
     Dosage: UNK
     Dates: start: 20040119
  3. PLATELETS [Concomitant]
     Dosage: 20 UNITS
     Route: 042
     Dates: start: 20040119
  4. TRASYLOL [Suspect]
     Indication: CORONARY ARTERY BYPASS
     Dosage: 1 ML TEST DOSE
     Route: 042
     Dates: start: 20040119, end: 20040119
  5. GLYBURIDE [Concomitant]
     Dosage: 5MG/TWICE A DAY
     Route: 048
  6. TOPROL-XL [Concomitant]
     Dosage: 50 MG, QD
  7. DIAZEPAM [Concomitant]
     Indication: MUSCLE SPASMS
     Dosage: 5 MG BID AS NEEDED
     Route: 048
  8. HYDROCODONE BITARTRATE AND ACETAMINOPHEN [Concomitant]
     Indication: BACK PAIN
     Dosage: 5/500 AS NEEDED
     Route: 048
  9. MECLIZINE [Concomitant]
     Indication: VERTIGO
     Dosage: 25 MG AS NEEDED
     Route: 048
  10. HYDROCHLOROTHIAZIDE [Concomitant]
     Dosage: 50 MG, QD
     Route: 048
  11. LIPITOR [Concomitant]
     Dosage: 40 MG, QD
     Route: 048
  12. PROTAMINE SULFATE [Concomitant]
     Dosage: 300 MG PUMP
     Route: 050
     Dates: start: 20040119
  13. MANNITOL [Concomitant]
     Dosage: 50 GM
     Dates: start: 20040119
  14. TRASYLOL [Suspect]
     Dosage: 200 ML LOADING DOSE
     Route: 042
     Dates: start: 20040114
  15. ALTACE [Concomitant]
     Dosage: 5 MG, QD
  16. ASPIRIN [Concomitant]
  17. ALBUMIN (HUMAN) [Concomitant]
     Dosage: 12.5 GM
     Dates: start: 20040119
  18. DOPAMINE HCL [Concomitant]
     Dosage: UNK
     Route: 041
     Dates: start: 20040119
  19. TRASYLOL [Suspect]
     Dosage: 2 CC
     Route: 042
     Dates: start: 20030119, end: 20040119
  20. NITROGLYCERIN [Concomitant]
     Dosage: AS NEEDED
  21. NITROGLYCERIN [Concomitant]
     Dosage: UNK
     Route: 042
     Dates: start: 20040119
  22. AVANDIA [Concomitant]
     Dosage: 5 MG, QD
     Route: 048
  23. TRICOR [Concomitant]
     Dosage: 160 MG, QD
     Route: 048
  24. HEPARIN [Concomitant]
     Dosage: 45,000 UNITS BYPASS PUMP
     Route: 050
     Dates: start: 20040119
  25. RED BLOOD CELLS [Concomitant]
     Dosage: 5 UNITS
     Dates: start: 20040119
  26. PLASMA [Concomitant]
     Dosage: 4 UNITS
     Route: 042
     Dates: start: 20040119
  27. CEFUROXIME [Concomitant]
     Dosage: 1.5 GM
     Dates: start: 20040119
  28. NOREPINEPHRINE BITARTRATE [Concomitant]
     Dosage: UNK
     Route: 041
     Dates: start: 20040119
  29. VISIPAQUE [Concomitant]
     Dosage: 90 ML
     Route: 042
     Dates: start: 20040115

REACTIONS (8)
  - EMOTIONAL DISTRESS [None]
  - DEATH [None]
  - RENAL FAILURE [None]
  - ANXIETY [None]
  - STRESS [None]
  - UNEVALUABLE EVENT [None]
  - PAIN [None]
  - FEAR [None]
